FAERS Safety Report 24343511 (Version 1)
Quarter: 2024Q3

REPORT INFORMATION
  Report Type: Spontaneous
  Country: CN (occurrence: CN)
  Receive Date: 20240920
  Receipt Date: 20240920
  Transmission Date: 20241017
  Serious: Yes (Hospitalization)
  Sender: PFIZER
  Company Number: CN-PFIZER INC-PV202400122272

PATIENT
  Age: 11 Year
  Sex: Male
  Weight: 39 kg

DRUGS (5)
  1. METHOTREXATE SODIUM [Suspect]
     Active Substance: METHOTREXATE SODIUM
     Indication: Chemotherapy
     Dosage: 6.45 G, 1X/DAY
     Route: 041
     Dates: start: 20240831, end: 20240831
  2. METHOTREXATE SODIUM [Suspect]
     Active Substance: METHOTREXATE SODIUM
     Indication: Neoplasm
     Dosage: 6.45 G, 1X/DAY
     Route: 041
     Dates: start: 20240831, end: 20240831
  3. MERCAPTOPURINE [Concomitant]
     Active Substance: MERCAPTOPURINE
     Indication: Chemotherapy
     Dosage: 33 MG, 1X/DAY
     Route: 048
     Dates: start: 20240831, end: 20240902
  4. MERCAPTOPURINE [Concomitant]
     Active Substance: MERCAPTOPURINE
     Indication: Neoplasm
  5. IBUPROFEN [Concomitant]
     Active Substance: IBUPROFEN
     Indication: Pyrexia
     Dosage: 10 ML, 1X/DAY
     Route: 048
     Dates: start: 20240901, end: 20240901

REACTIONS (4)
  - Blood creatinine increased [Recovering/Resolving]
  - Drug level increased [Recovering/Resolving]
  - Pyrexia [Unknown]
  - Vomiting [Unknown]

NARRATIVE: CASE EVENT DATE: 20240901
